FAERS Safety Report 19458618 (Version 2)
Quarter: 2021Q3

REPORT INFORMATION
  Report Type: Spontaneous
  Country: CH (occurrence: CH)
  Receive Date: 20210624
  Receipt Date: 20210708
  Transmission Date: 20211014
  Serious: Yes (Other)
  Sender: FDA-Public Use
  Company Number: CH-AMGEN-CHESP2021093044

PATIENT

DRUGS (2)
  1. IMLYGIC [Suspect]
     Active Substance: TALIMOGENE LAHERPAREPVEC
     Indication: FOLLICLE CENTRE LYMPHOMA DIFFUSE SMALL CELL LYMPHOMA
     Dosage: UNK (UPTO 4 ML X 10^8 PFU/ML)
     Route: 026
  2. IMLYGIC [Suspect]
     Active Substance: TALIMOGENE LAHERPAREPVEC
     Dosage: UNK UNK, Q2WK (UPTO 4 ML X 10^8 PFU/ML)
     Route: 026

REACTIONS (5)
  - Follicle centre lymphoma diffuse small cell lymphoma [Unknown]
  - Injection site inflammation [Unknown]
  - Anaemia [Unknown]
  - Influenza like illness [Unknown]
  - Oral herpes [Unknown]
